FAERS Safety Report 9772397 (Version 2)
Quarter: 2014Q1

REPORT INFORMATION
  Report Type: Spontaneous
  Country: US (occurrence: None)
  Receive Date: 20131217
  Receipt Date: 20140102
  Transmission Date: 20141002
  Serious: Yes (Hospitalization)
  Sender: FDA-Public Use
  Company Number: UTC-041741

PATIENT
  Age: 53 Year
  Sex: Female
  Weight: 59.1 kg

DRUGS (3)
  1. TYVASO [Suspect]
     Indication: PULMONARY HYPERTENSION
     Dosage: 18-54 MCG (4 IN 1 D), INHALATION
     Route: 055
     Dates: start: 20130830
  2. WARFARIN [Concomitant]
  3. REVATIO (SILDENAFIL CITRATE) [Concomitant]

REACTIONS (4)
  - Adverse drug reaction [None]
  - Bile duct obstruction [None]
  - Sepsis [None]
  - Cholangitis [None]
